FAERS Safety Report 11441839 (Version 5)
Quarter: 2017Q1

REPORT INFORMATION
  Report Type: Spontaneous
  Country: US (occurrence: US)
  Receive Date: 20150901
  Receipt Date: 20170216
  Transmission Date: 20170428
  Serious: Yes (Congenital Anomaly, Other)
  Sender: FDA-Public Use
  Company Number: US-ABBVIE-15P-163-1451397-00

PATIENT
  Sex: Male

DRUGS (1)
  1. HUMIRA [Suspect]
     Active Substance: ADALIMUMAB
     Indication: RHEUMATOID ARTHRITIS
     Route: 058

REACTIONS (10)
  - Activities of daily living impaired [Unknown]
  - Feeling abnormal [Unknown]
  - Bronchitis [Recovering/Resolving]
  - Abdominal pain [Unknown]
  - Congenital diaphragmatic hernia [Unknown]
  - Joint range of motion decreased [Unknown]
  - Injury [Unknown]
  - Lung disorder [Unknown]
  - Mobility decreased [Unknown]
  - Chronic obstructive pulmonary disease [Unknown]
